FAERS Safety Report 23790240 (Version 1)
Quarter: 2024Q2

REPORT INFORMATION
  Report Type: Other
  Country: US (occurrence: None)
  Receive Date: 20240426
  Receipt Date: 20240426
  Transmission Date: 20240716
  Serious: Yes (Death)
  Sender: FDA-Public Use
  Company Number: US-ROCHE-3552307

PATIENT
  Age: 65 Year
  Sex: Female

DRUGS (4)
  1. TECENTRIQ [Suspect]
     Active Substance: ATEZOLIZUMAB
     Indication: Lung neoplasm malignant
     Dosage: 0 840 MG VIAL, INFUSE 1200MG INTRAVENOUSLY EVERY 21 DAY(S) X 12 CYCLES
     Route: 042
  2. DARVOCET-N 100 [Concomitant]
     Active Substance: ACETAMINOPHEN\PROPOXYPHENE NAPSYLATE
  3. DARVON [Concomitant]
     Active Substance: PROPOXYPHENE HYDROCHLORIDE
  4. NEOSPORIN (UNITED STATES) [Concomitant]

REACTIONS (1)
  - Death [Fatal]
